FAERS Safety Report 19656682 (Version 1)
Quarter: 2021Q3

REPORT INFORMATION
  Report Type: Spontaneous
  Country: FR (occurrence: FR)
  Receive Date: 20210804
  Receipt Date: 20210804
  Transmission Date: 20211014
  Serious: Yes (Hospitalization)
  Sender: FDA-Public Use
  Company Number: FR-TEVA-2021-FR-1938849

PATIENT
  Age: 71 Year
  Sex: Female
  Weight: 51 kg

DRUGS (10)
  1. ACUPAN [Concomitant]
     Active Substance: NEFOPAM HYDROCHLORIDE
  2. FLUOROURACILE [Suspect]
     Active Substance: FLUOROURACIL
     Indication: COLORECTAL CANCER METASTATIC
     Dosage: 4077 MG
     Route: 042
     Dates: start: 20210310, end: 20210520
  3. HUMALOG [Concomitant]
     Active Substance: INSULIN LISPRO
  4. GAVISCON [Concomitant]
     Active Substance: ALUMINUM HYDROXIDE\MAGNESIUM CARBONATE
  5. PARACETAMOL [Concomitant]
     Active Substance: ACETAMINOPHEN
  6. LOVENOX [Concomitant]
     Active Substance: ENOXAPARIN SODIUM
  7. LUMIGAN [Concomitant]
     Active Substance: BIMATOPROST
  8. IRINOTECAN [Suspect]
     Active Substance: IRINOTECAN
     Indication: COLORECTAL CANCER METASTATIC
     Dosage: 272 MG
     Route: 042
     Dates: start: 20210310, end: 20210520
  9. LANSOPRAZOLE. [Concomitant]
     Active Substance: LANSOPRAZOLE
  10. LACRINORM [Concomitant]
     Active Substance: CARBOMER

REACTIONS (2)
  - Colitis [Recovered/Resolved]
  - Diarrhoea [Recovered/Resolved]

NARRATIVE: CASE EVENT DATE: 20210421
